FAERS Safety Report 17528127 (Version 1)
Quarter: 2020Q1

REPORT INFORMATION
  Report Type: Spontaneous
  Country: NL (occurrence: NL)
  Receive Date: 20200311
  Receipt Date: 20200311
  Transmission Date: 20200409
  Serious: Yes (Life-Threatening, Hospitalization)
  Sender: FDA-Public Use
  Company Number: NL-009507513-2003NLD000920

PATIENT
  Age: 66 Year
  Sex: Male
  Weight: 72.5 kg

DRUGS (15)
  1. NEUPRO [Concomitant]
     Active Substance: ROTIGOTINE
     Dosage: 1 DOSAGE FORM, QD, 1 TIME A DAY 1, 24HOURS
  2. ALBUTEROL (+) IPRATROPIUM BROMIDE [Concomitant]
     Active Substance: ALBUTEROL\IPRATROPIUM BROMIDE
     Dosage: 2 TIMES A DAY 1
  3. VALPROATE SODIUM. [Concomitant]
     Active Substance: VALPROATE SODIUM
     Dosage: 500 MILLIGRAM, Q12H, 2 TIMES A DAY 1, SANDOZ
  4. PREGABALIN. [Concomitant]
     Active Substance: PREGABALIN
     Dosage: 50 MILLIGRAM, QD, 1 TIME A DAY 2, ACCORD
  5. FRESUBIN ENERGY [Concomitant]
     Dosage: UNK
  6. VESOMNI [Concomitant]
     Active Substance: SOLIFENACIN\TAMSULOSIN
     Dosage: 1 DOSAGE FORM, QD, 1 TIME A DAY 1
  7. ESOMEPRAZOLE. [Concomitant]
     Active Substance: ESOMEPRAZOLE MAGNESIUM
     Dosage: 40 MILLIGRAM, QD, 1 TIME A DAY 1, ARISTO
  8. FRESUBIN ENERGY [Concomitant]
     Dosage: BANANA
  9. NOXAFIL [Suspect]
     Active Substance: POSACONAZOLE
     Indication: ASPERGILLUS INFECTION
     Dosage: 200 MILLIGRAM, QD, STOMACH ACID RESISTANT TABLET,1 TIME A DAY,2
     Dates: start: 20170415
  10. MIRABEGRON [Suspect]
     Active Substance: MIRABEGRON
     Indication: BLADDER IRRITATION
     Dosage: TABLET CONTROL RELEASE, 50 MG (MILLIGRAM), 1 TIME A DAY,1
     Dates: start: 20170406
  11. CALCIUM CARBONATE (+) CHOLECALCIFEROL [Concomitant]
     Active Substance: CALCIUM CARBONATE\CHOLECALCIFEROL
     Dosage: 1 DOSAGE FORM, QD, 1 TIME A DAY 1
  12. RESONIUM [Concomitant]
     Active Substance: SODIUM POLYSTYRENE SULFONATE
     Dosage: 1 TIME A DAY 15MG
  13. ALVESCO [Concomitant]
     Active Substance: CICLESONIDE
     Dosage: UNK
  14. CLARITHROMYCIN. [Concomitant]
     Active Substance: CLARITHROMYCIN
     Dosage: 500 MILLIGRAM, QD, 1 TIME A DAY 1, SUN
  15. FRESUBIN JUCY [Concomitant]
     Dosage: UNK

REACTIONS (1)
  - Hyperkalaemia [Recovering/Resolving]

NARRATIVE: CASE EVENT DATE: 20200120
